FAERS Safety Report 17879174 (Version 1)
Quarter: 2020Q2

REPORT INFORMATION
  Report Type: Spontaneous
  Country: US (occurrence: US)
  Receive Date: 20200609
  Receipt Date: 20200609
  Transmission Date: 20200714
  Serious: Yes (Death)
  Sender: FDA-Public Use
  Company Number: None

PATIENT
  Age: 67 Year
  Sex: Female
  Weight: 83.2 kg

DRUGS (21)
  1. ATORVASTATIN 40MG [Concomitant]
     Active Substance: ATORVASTATIN
     Dates: start: 20200602, end: 20200602
  2. METHYLPREDNISOLONE 40MG [Concomitant]
     Dates: start: 20200602, end: 20200602
  3. VANCOMYCIN [Concomitant]
     Active Substance: VANCOMYCIN
     Dates: start: 20200602, end: 20200602
  4. NOREPINEPHRINE DRIP [Concomitant]
     Dates: start: 20200602, end: 20200603
  5. CEFEPIME [Concomitant]
     Active Substance: CEFEPIME HYDROCHLORIDE
     Dates: start: 20200602, end: 20200603
  6. FENTANYL DRIP [Concomitant]
     Dates: start: 20200602, end: 20200603
  7. REMDESIVIR. [Suspect]
     Active Substance: REMDESIVIR
     Indication: COVID-19
     Dosage: ?          OTHER FREQUENCY:X 1;?
     Route: 040
     Dates: start: 20200602, end: 20200603
  8. ASPIRIN 81MG [Concomitant]
     Active Substance: ASPIRIN
     Dates: start: 20200602, end: 20200603
  9. CHLORHEXIDINE MOUTHWASH [Concomitant]
     Active Substance: CHLORHEXIDINE
     Dates: start: 20200602, end: 20200603
  10. DEXAMETHASONE 20MG [Concomitant]
     Active Substance: DEXAMETHASONE
     Dates: start: 20200602, end: 20200603
  11. INSULIN GLARGINE [Concomitant]
     Active Substance: INSULIN GLARGINE
     Dates: start: 20200602, end: 20200603
  12. ACEAMINOPHEN 650MG [Concomitant]
     Dates: start: 20200603, end: 20200603
  13. HEPARIN [Concomitant]
     Active Substance: HEPARIN SODIUM
     Dates: start: 20200602, end: 20200603
  14. FAMOTIDINE 20MG [Concomitant]
     Active Substance: FAMOTIDINE
     Dates: start: 20200602, end: 20200602
  15. INSULIN REGULAR [Concomitant]
     Active Substance: INSULIN NOS
     Dates: start: 20200602, end: 20200603
  16. LEVOFLOXACIN 750MG [Concomitant]
     Active Substance: LEVOFLOXACIN
     Dates: start: 20200602, end: 20200602
  17. PROPOFOL DRIP [Concomitant]
     Active Substance: PROPOFOL
     Dates: start: 20200602, end: 20200602
  18. CLOPIDOGREL [Concomitant]
     Active Substance: CLOPIDOGREL BISULFATE
     Dates: start: 20200602, end: 20200603
  19. PHENYLEPHRINE DRIP [Concomitant]
     Dates: start: 20200602, end: 20200603
  20. ENOXIPARIN 40MG [Concomitant]
     Dates: start: 20200602, end: 20200602
  21. MIDAZOLAM DRIP [Concomitant]
     Dates: start: 20200602, end: 20200603

REACTIONS (2)
  - Hepatotoxicity [None]
  - Nephropathy toxic [None]

NARRATIVE: CASE EVENT DATE: 20200603
